FAERS Safety Report 20993704 (Version 2)
Quarter: 2022Q2

REPORT INFORMATION
  Report Type: Spontaneous
  Country: US (occurrence: US)
  Receive Date: 20220622
  Receipt Date: 20220624
  Transmission Date: 20220720
  Serious: Yes (Other)
  Sender: FDA-Public Use
  Company Number: US-PFIZER INC-PV202200006452

PATIENT
  Age: 58 Year
  Sex: Female
  Weight: 108 kg

DRUGS (7)
  1. NEURONTIN [Suspect]
     Active Substance: GABAPENTIN
     Indication: Seizure
     Dosage: 6.5 IN THE MORNING, 6.6 IN THE AFTERNOON AND 10 IN THE EVENING
     Dates: start: 201911
  2. NEURONTIN [Suspect]
     Active Substance: GABAPENTIN
     Dosage: 7.5 IN THE MORNING, 7.5 IN THE AFTERNOON AND 11 IN THE EVENING
  3. NEURONTIN [Suspect]
     Active Substance: GABAPENTIN
     Dosage: 7, TO 6.5, KEPT GOING DOWN TO 5.5 TO 10
  4. NEURONTIN [Suspect]
     Active Substance: GABAPENTIN
     Dosage: UNK
  5. GABAPENTIN [Suspect]
     Active Substance: GABAPENTIN
     Indication: Seizure
     Dosage: UNK
     Dates: start: 201602
  6. GABAPENTIN [Suspect]
     Active Substance: GABAPENTIN
     Dosage: IN THE MORNING, IN THE AFTERNOON AND AT NIGHT (EVERY 8 HOURS)
     Dates: start: 202206
  7. DIVALPROEX SODIUM [Concomitant]
     Active Substance: DIVALPROEX SODIUM
     Indication: Seizure
     Dosage: UNK

REACTIONS (2)
  - Drug ineffective [Unknown]
  - Product dose omission issue [Unknown]
